FAERS Safety Report 9894448 (Version 2)
Quarter: 2014Q1

REPORT INFORMATION
  Report Type: Spontaneous
  Country: NL (occurrence: NL)
  Receive Date: 20140213
  Receipt Date: 20140227
  Transmission Date: 20141002
  Serious: Yes (Disabling)
  Sender: FDA-Public Use
  Company Number: PHHY2014NL015967

PATIENT
  Sex: Male

DRUGS (1)
  1. EXJADE [Suspect]
     Indication: SERUM FERRITIN INCREASED
     Dosage: 500 MG, TID
     Route: 048
     Dates: start: 20120926, end: 20140127

REACTIONS (2)
  - Retinal vein thrombosis [Not Recovered/Not Resolved]
  - Vision blurred [Not Recovered/Not Resolved]
